FAERS Safety Report 9693911 (Version 2)
Quarter: 2013Q4

REPORT INFORMATION
  Report Type: Spontaneous
  Country: JP (occurrence: JP)
  Receive Date: 20131118
  Receipt Date: 20131205
  Transmission Date: 20140711
  Serious: No
  Sender: FDA-Public Use
  Company Number: JP-PFIZER INC-2013327257

PATIENT
  Age: 74 Year
  Sex: Female

DRUGS (1)
  1. LYRICA [Suspect]
     Dosage: UNK
     Route: 048
     Dates: start: 20131111, end: 20131115

REACTIONS (1)
  - Tremor [Unknown]
